FAERS Safety Report 13138864 (Version 4)
Quarter: 2018Q1

REPORT INFORMATION
  Report Type: Spontaneous
  Country: US (occurrence: US)
  Receive Date: 20170123
  Receipt Date: 20180220
  Transmission Date: 20180508
  Serious: Yes (Other)
  Sender: FDA-Public Use
  Company Number: US-PFIZER INC-2017026990

PATIENT
  Age: 59 Year
  Sex: Female

DRUGS (2)
  1. PROLIA [Concomitant]
     Active Substance: DENOSUMAB
     Dosage: 60 MG, UNK
  2. XELJANZ [Suspect]
     Active Substance: TOFACITINIB CITRATE
     Dosage: 5 MG, 2X/DAY
     Route: 048
     Dates: start: 20160830

REACTIONS (14)
  - Oral pain [Unknown]
  - Tooth infection [Unknown]
  - Gastric infection [Unknown]
  - Condition aggravated [Unknown]
  - Abdominal pain upper [Unknown]
  - Hernia [Unknown]
  - Blood cholesterol increased [Unknown]
  - Tracheal pain [Unknown]
  - Fall [Unknown]
  - Oral infection [Unknown]
  - Pain in extremity [Unknown]
  - Arthralgia [Not Recovered/Not Resolved]
  - Urinary tract infection [Unknown]
  - Fracture [Unknown]

NARRATIVE: CASE EVENT DATE: 201710
